FAERS Safety Report 10478584 (Version 1)
Quarter: 2014Q3

REPORT INFORMATION
  Report Type: Spontaneous
  Country: US (occurrence: None)
  Receive Date: 20140924
  Receipt Date: 20140924
  Transmission Date: 20150326
  Serious: Yes (Other)
  Sender: FDA-Public Use
  Company Number: US-MDCO-14-00192

PATIENT
  Age: 48 Year
  Sex: Male

DRUGS (4)
  1. VERAPAMIL [Concomitant]
     Active Substance: VERAPAMIL HYDROCHLORIDE
  2. NITROGLYCERINE (GLYCERYL TRINITRATE) (CLYCERYL TRINITRATE) [Concomitant]
  3. HEPARIN [Concomitant]
     Active Substance: HEPARIN SODIUM
  4. ANGIOMAX [Suspect]
     Active Substance: BIVALIRUDIN
     Indication: PERCUTANEOUS CORONARY INTERVENTION
     Route: 040
     Dates: start: 20140608, end: 20140608

REACTIONS (2)
  - Thrombosis in device [None]
  - Myocardial infarction [None]

NARRATIVE: CASE EVENT DATE: 20140608
